FAERS Safety Report 5289084-9 (Version None)
Quarter: 2007Q1

REPORT INFORMATION
  Report Type: 
  Country: None (occurrence: None)
  Receive Date: 20070118
  Receipt Date: 20060711
  Transmission Date: 20070707
  Serious: Yes (Other)
  Sender: FDA-Public Use
  Company Number: 145508USA

PATIENT
  Sex: Female

DRUGS (2)
  1. METRONIDAZOLE 250MG TAB [Suspect]
     Indication: FOOD POISONING
     Dosage: ORAL
     Route: 048
     Dates: start: 20060401, end: 20060401
  2. BACTRIM [Suspect]
     Indication: FOOD POISONING
     Dosage: 800 MG/ 160 MG (EVERY 8 HOURS), ORAL
     Route: 048
     Dates: start: 20060401, end: 20060401

REACTIONS (1)
  - URTICARIA [None]
